FAERS Safety Report 16183450 (Version 2)
Quarter: 2019Q3

REPORT INFORMATION
  Report Type: Spontaneous
  Country: US (occurrence: US)
  Receive Date: 20190411
  Receipt Date: 20190703
  Transmission Date: 20191004
  Serious: No
  Sender: FDA-Public Use
  Company Number: US-BIOGEN-2019BI00721402

PATIENT
  Age: 38 Year
  Sex: Male

DRUGS (1)
  1. TYSABRI [Suspect]
     Active Substance: NATALIZUMAB
     Indication: MULTIPLE SCLEROSIS
     Dosage: TYSABRI      INJ 300MG/15ML
     Route: 042
     Dates: start: 201903

REACTIONS (2)
  - Hemianaesthesia [Unknown]
  - Swelling face [Unknown]

NARRATIVE: CASE EVENT DATE: 20190403
